FAERS Safety Report 5887125-9 (Version None)
Quarter: 2008Q3

REPORT INFORMATION
  Report Type: 
  Country: None (occurrence: None)
  Receive Date: 20080915
  Receipt Date: 20080901
  Transmission Date: 20090109
  Serious: Yes (Other)
  Sender: FDA-Public Use
  Company Number: 2008AL010246

PATIENT
  Age: 70 Year

DRUGS (7)
  1. METFORMIN HYDROCHLORIDE [Suspect]
     Indication: DIABETES MELLITUS
     Dosage: PO
     Route: 048
     Dates: start: 20030101
  2. RAMIPRIL [Concomitant]
  3. ACETYSALICYLIC ACID [Concomitant]
  4. RABEPRAZOLE SODIUM [Concomitant]
  5. ADALAT [Concomitant]
  6. SIMVASTATIN [Concomitant]
  7. GLICLAZIDE [Concomitant]

REACTIONS (2)
  - MEAN CELL VOLUME INCREASED [None]
  - VITAMIN B12 DECREASED [None]
